FAERS Safety Report 9879267 (Version 2)
Quarter: 2014Q1

REPORT INFORMATION
  Report Type: Spontaneous
  Country: US (occurrence: US)
  Receive Date: 20140206
  Receipt Date: 20140206
  Transmission Date: 20141002
  Serious: No
  Sender: FDA-Public Use
  Company Number: US-ALLERGAN-1314619US

PATIENT
  Age: 64 Year
  Sex: Male

DRUGS (12)
  1. BOTOX [Suspect]
     Indication: MIGRAINE
     Dosage: 500 UNITS, SINGLE
     Route: 030
     Dates: start: 20130913, end: 20130913
  2. BOTOX [Suspect]
     Indication: BACK PAIN
  3. IMITREX                            /01044801/ [Concomitant]
     Indication: MIGRAINE
     Dosage: UNK
     Route: 048
  4. IMITREX                            /01044801/ [Concomitant]
     Dosage: UNK
     Route: 058
  5. PERCOCET                           /00446701/ [Concomitant]
     Indication: PAIN
     Dosage: UNK
     Route: 048
  6. FLEXERIL                           /00428402/ [Concomitant]
     Indication: PAIN
     Dosage: 10 MG, UNK
     Route: 048
  7. LAMICTAL [Concomitant]
     Indication: PRODUCT USED FOR UNKNOWN INDICATION
     Dosage: UNK
     Route: 048
  8. PAXIL                              /00500401/ [Concomitant]
     Indication: PRODUCT USED FOR UNKNOWN INDICATION
     Dosage: UNK
     Route: 048
  9. WELLBUTRIN [Concomitant]
     Indication: PRODUCT USED FOR UNKNOWN INDICATION
     Dosage: UNK
     Route: 048
  10. LIPITOR [Concomitant]
     Indication: PRODUCT USED FOR UNKNOWN INDICATION
     Dosage: UNK
     Route: 048
  11. MOBIC [Concomitant]
     Indication: PRODUCT USED FOR UNKNOWN INDICATION
     Dosage: UNK
     Route: 048
  12. FIORICET [Concomitant]
     Indication: PRODUCT USED FOR UNKNOWN INDICATION
     Dosage: UNK, PRN
     Route: 048

REACTIONS (3)
  - Off label use [Unknown]
  - Overdose [Unknown]
  - Drug ineffective [Unknown]
